FAERS Safety Report 8354204 (Version 2)
Quarter: 2012Q4

REPORT INFORMATION
  Report Type: 
  Country: EC (occurrence: EC)
  Receive Date: 20120125
  Receipt Date: 20120906
  Transmission Date: 20130627
  Serious: Yes (Other)
  Sender: FDA-Public Use
  Company Number: PHHY2012EC005988

PATIENT
  Age: 74 Year
  Sex: Female

DRUGS (3)
  1. ACLASTA [Suspect]
     Indication: OSTEOPOROSIS
     Dosage: 5 mg/100ml STAT
     Route: 042
     Dates: start: 20090424
  2. ACLASTA [Suspect]
     Dosage: 5 mg/100ml
     Route: 042
     Dates: start: 20110516
  3. ACLASTA [Suspect]
     Dosage: 5 mg/100ml STAT
     Route: 042
     Dates: start: 201204

REACTIONS (3)
  - Accident [Recovering/Resolving]
  - Limb injury [Recovering/Resolving]
  - Pain [Recovering/Resolving]
